FAERS Safety Report 14856872 (Version 2)
Quarter: 2018Q4

REPORT INFORMATION
  Report Type: Spontaneous
  Country: US (occurrence: US)
  Receive Date: 20180507
  Receipt Date: 20181010
  Transmission Date: 20190204
  Serious: No
  Sender: FDA-Public Use
  Company Number: US-ROCHE-2070936

PATIENT
  Sex: Female

DRUGS (8)
  1. ATORVASTATIN [Concomitant]
     Active Substance: ATORVASTATIN
     Route: 065
  2. ESBRIET [Suspect]
     Active Substance: PIRFENIDONE
     Indication: IDIOPATHIC PULMONARY FIBROSIS
     Route: 048
     Dates: start: 20170920
  3. RANITIDINE HCL [Concomitant]
     Active Substance: RANITIDINE HYDROCHLORIDE
  4. ALENDRONATE [Concomitant]
     Active Substance: ALENDRONATE SODIUM
     Route: 065
  5. PREDNISONE. [Concomitant]
     Active Substance: PREDNISONE
     Route: 065
  6. METHYLPREDNISOLON [Concomitant]
     Active Substance: METHYLPREDNISOLONE
     Route: 065
  7. ESBRIET [Suspect]
     Active Substance: PIRFENIDONE
     Route: 048
  8. ESBRIET [Suspect]
     Active Substance: PIRFENIDONE
     Dosage: 2 TABLETS?TAKE 2 TABLETS BY MOUTH TWICE A DAY
     Route: 048

REACTIONS (3)
  - Gastrooesophageal reflux disease [Not Recovered/Not Resolved]
  - Dyspepsia [Not Recovered/Not Resolved]
  - Back pain [Not Recovered/Not Resolved]
